FAERS Safety Report 8596294-1 (Version None)
Quarter: 2012Q3

REPORT INFORMATION
  Report Type: 
  Country: None (occurrence: None)
  Receive Date: 20120815
  Receipt Date: 20120808
  Transmission Date: 20120928
  Serious: Yes (Death, Hospitalization)
  Sender: FDA-Public Use
  Company Number: IT-CELGENEUS-083-21880-11113261

PATIENT
  Sex: Female

DRUGS (6)
  1. EPOGEN [Concomitant]
     Route: 048
     Dates: start: 20110804
  2. ALLOPURINOL [Concomitant]
     Dosage: 300 MILLIGRAM
     Route: 048
     Dates: start: 20110804
  3. REVLIMID [Suspect]
     Indication: MULTIPLE MYELOMA
     Dosage: 10 MILLIGRAM
     Route: 048
     Dates: start: 20110804, end: 20111024
  4. NEUPOGEN [Concomitant]
     Indication: NEUTROPENIA
     Route: 058
     Dates: start: 20110804
  5. FOLIC ACID [Concomitant]
     Indication: PANCYTOPENIA
     Dosage: 5 MILLIGRAM
     Route: 048
     Dates: start: 20110804
  6. DEXAMETHASONE [Concomitant]
     Dosage: 40 MILLIGRAM
     Route: 048

REACTIONS (1)
  - ACUTE MYELOID LEUKAEMIA [None]
